FAERS Safety Report 17585024 (Version 1)
Quarter: 2020Q1

REPORT INFORMATION
  Report Type: Spontaneous
  Country: US (occurrence: US)
  Receive Date: 20200326
  Receipt Date: 20200326
  Transmission Date: 20200409
  Serious: Yes (Hospitalization)
  Sender: FDA-Public Use
  Company Number: US-MYLANLABS-2020M1032963

PATIENT
  Age: 14 Year
  Sex: Male

DRUGS (20)
  1. CLOZAPINE. [Suspect]
     Active Substance: CLOZAPINE
     Indication: SCHIZOPHRENIA
     Route: 065
     Dates: start: 2016, end: 201706
  2. DOXYCYCLINE MONOHYDRATE [Concomitant]
     Active Substance: DOXYCYCLINE
     Indication: CAT SCRATCH DISEASE
     Dosage: 100 MILLIGRAM
     Route: 065
     Dates: start: 2017, end: 2017
  3. OLANZAPINE. [Concomitant]
     Active Substance: OLANZAPINE
     Indication: NEUROPSYCHIATRIC SYNDROME
     Route: 065
     Dates: start: 2016, end: 2016
  4. TRAMADOL. [Suspect]
     Active Substance: TRAMADOL
     Indication: PAIN
     Route: 065
     Dates: start: 2016, end: 201706
  5. LORAZEPAM. [Concomitant]
     Active Substance: LORAZEPAM
     Indication: NEUROPSYCHIATRIC SYNDROME
     Route: 065
     Dates: start: 2016, end: 2017
  6. PALIPERIDONE. [Concomitant]
     Active Substance: PALIPERIDONE
     Indication: NEUROPSYCHIATRIC SYNDROME
     Route: 065
     Dates: start: 2016, end: 2017
  7. ZIPRASIDONE. [Concomitant]
     Active Substance: ZIPRASIDONE
     Indication: NEUROPSYCHIATRIC SYNDROME
     Route: 065
     Dates: start: 2016, end: 2016
  8. NYSTATIN. [Concomitant]
     Active Substance: NYSTATIN
     Indication: CAT SCRATCH DISEASE
     Dosage: 500000 INTERNATIONAL UNIT
     Route: 065
     Dates: start: 2017, end: 2017
  9. MINOCYCLINE [Concomitant]
     Active Substance: MINOCYCLINE HYDROCHLORIDE
     Indication: CAT SCRATCH DISEASE
     Route: 065
     Dates: start: 2017, end: 2018
  10. AZITHROMYCIN ANHYDROUS. [Concomitant]
     Active Substance: AZITHROMYCIN ANHYDROUS
     Indication: CAT SCRATCH DISEASE
     Dosage: 250 MILLIGRAM
     Route: 065
     Dates: start: 2017, end: 2017
  11. HYDROXYCHLOROQUINE [Concomitant]
     Active Substance: HYDROXYCHLOROQUINE
     Indication: CAT SCRATCH DISEASE
     Dosage: 200 MILLIGRAM
     Route: 065
     Dates: start: 2017, end: 2017
  12. BENZATROPINE [Concomitant]
     Active Substance: BENZTROPINE
     Indication: NEUROPSYCHIATRIC SYNDROME
     Route: 065
     Dates: start: 2016, end: 2017
  13. LANSOPRAZOLE. [Concomitant]
     Active Substance: LANSOPRAZOLE
     Indication: GASTROOESOPHAGEAL REFLUX DISEASE
     Route: 065
     Dates: start: 2017, end: 2017
  14. CLARITHROMYCIN. [Concomitant]
     Active Substance: CLARITHROMYCIN
     Indication: CAT SCRATCH DISEASE
     Route: 065
     Dates: start: 2017, end: 2017
  15. RIFAMPICIN [Suspect]
     Active Substance: RIFAMPIN
     Indication: CAT SCRATCH DISEASE
     Dosage: 300 MILLIGRAM, BID
     Route: 065
  16. LITHIUM. [Concomitant]
     Active Substance: LITHIUM
     Indication: NEUROPSYCHIATRIC SYNDROME
     Route: 065
     Dates: start: 2016, end: 2016
  17. RISPERIDONE. [Concomitant]
     Active Substance: RISPERIDONE
     Indication: NEUROPSYCHIATRIC SYNDROME
     Route: 065
     Dates: start: 2016, end: 2016
  18. FLUVOXAMINE [Concomitant]
     Active Substance: FLUVOXAMINE
     Indication: NEUROPSYCHIATRIC SYNDROME
     Route: 065
     Dates: start: 2016, end: 2017
  19. RITUXIMAB. [Concomitant]
     Active Substance: RITUXIMAB
     Indication: ENCEPHALITIS AUTOIMMUNE
     Route: 065
     Dates: start: 2016, end: 2017
  20. TRIMETHOPRIM SULFAMETHOXAZOLE [Concomitant]
     Active Substance: SULFAMETHOXAZOLE\TRIMETHOPRIM
     Indication: CAT SCRATCH DISEASE
     Route: 065
     Dates: start: 2017, end: 2017

REACTIONS (5)
  - Jarisch-Herxheimer reaction [Unknown]
  - Withdrawal syndrome [Unknown]
  - Nausea [Unknown]
  - Vomiting [Unknown]
  - Decreased appetite [Unknown]

NARRATIVE: CASE EVENT DATE: 2017
